FAERS Safety Report 17028058 (Version 1)
Quarter: 2019Q4

REPORT INFORMATION
  Report Type: Spontaneous
  Country: US (occurrence: US)
  Receive Date: 20191113
  Receipt Date: 20191113
  Transmission Date: 20200122
  Serious: Yes (Death, Hospitalization)
  Sender: FDA-Public Use
  Company Number: NVSC2019US033526

PATIENT
  Age: 52 Year
  Sex: Female

DRUGS (13)
  1. METHOTREXATE. [Suspect]
     Active Substance: METHOTREXATE
     Indication: ACUTE LYMPHOCYTIC LEUKAEMIA
     Dosage: UNK
     Route: 065
  2. PREDNISOLONE. [Suspect]
     Active Substance: PREDNISOLONE
     Indication: CHEMOTHERAPY
  3. 6-MERCAPTOPURINE MONOHYDRATE [Suspect]
     Active Substance: MERCAPTOPURINE
     Indication: ACUTE LYMPHOCYTIC LEUKAEMIA
     Dosage: UNK
     Route: 065
  4. VINCRISTINE [Suspect]
     Active Substance: VINCRISTINE
     Indication: CHEMOTHERAPY
  5. ISAVUCONAZOLE [Concomitant]
     Active Substance: ISAVUCONAZOLE
     Indication: FUNGAL INFECTION
     Dosage: UNK
     Route: 065
  6. PREDNISOLONE. [Suspect]
     Active Substance: PREDNISOLONE
     Indication: ACUTE LYMPHOCYTIC LEUKAEMIA
     Dosage: UNK
     Route: 065
  7. VINCRISTINE [Suspect]
     Active Substance: VINCRISTINE
     Indication: ACUTE LYMPHOCYTIC LEUKAEMIA
     Dosage: UNK
     Route: 065
  8. CEFTAZIDIME. [Concomitant]
     Active Substance: CEFTAZIDIME
     Indication: FUNGAL INFECTION
     Dosage: UNK
     Route: 065
  9. AMPHOTERICIN [Concomitant]
     Active Substance: AMPHOTERICIN B
     Indication: FUNGAL INFECTION
     Dosage: UNK
     Route: 065
  10. METHOTREXATE. [Suspect]
     Active Substance: METHOTREXATE
     Indication: CHEMOTHERAPY
  11. 6-MERCAPTOPURINE MONOHYDRATE [Suspect]
     Active Substance: MERCAPTOPURINE
     Indication: CHEMOTHERAPY
  12. DAPTOMYCIN. [Concomitant]
     Active Substance: DAPTOMYCIN
     Indication: STENOTROPHOMONAS INFECTION
     Dosage: UNK
     Route: 065
  13. MEROPENEM. [Concomitant]
     Active Substance: MEROPENEM
     Indication: STENOTROPHOMONAS INFECTION
     Dosage: UNK
     Route: 065

REACTIONS (14)
  - Hypoxia [Unknown]
  - Fungal infection [Unknown]
  - Disease progression [Unknown]
  - Haemoptysis [Fatal]
  - Skin lesion [Unknown]
  - Acute lymphocytic leukaemia [Unknown]
  - Stenotrophomonas infection [Unknown]
  - Erythema [Unknown]
  - Condition aggravated [Fatal]
  - Productive cough [Unknown]
  - Pyrexia [Unknown]
  - Malignant neoplasm progression [Unknown]
  - Shock [Unknown]
  - Respiratory disorder [Fatal]
